FAERS Safety Report 7659236-9 (Version None)
Quarter: 2011Q3

REPORT INFORMATION
  Report Type: 
  Country: None (occurrence: None)
  Receive Date: 20110805
  Receipt Date: 20110725
  Transmission Date: 20111222
  Serious: Yes (Hospitalization, Other)
  Sender: FDA-Public Use
  Company Number: US-ROCHE-719247

PATIENT
  Sex: Male
  Weight: 75.8 kg

DRUGS (1)
  1. ACCUTANE [Suspect]
     Indication: ACNE
     Route: 048
     Dates: start: 19940609, end: 19941215

REACTIONS (8)
  - LIP DRY [None]
  - DRY SKIN [None]
  - PROCTITIS [None]
  - DEPRESSION [None]
  - COLITIS ULCERATIVE [None]
  - INTESTINAL OBSTRUCTION [None]
  - INFLAMMATORY BOWEL DISEASE [None]
  - BLOOD ALKALINE PHOSPHATASE INCREASED [None]
